FAERS Safety Report 5865180-X (Version None)
Quarter: 2008Q3

REPORT INFORMATION
  Report Type: 
  Country: None (occurrence: None)
  Receive Date: 20080829
  Receipt Date: 20080822
  Transmission Date: 20090109
  Serious: Yes (Other)
  Sender: FDA-Public Use
  Company Number: A0745243A

PATIENT
  Age: 76 Year

DRUGS (3)
  1. AVANDIA [Suspect]
     Indication: DRUG USE FOR UNKNOWN INDICATION
  2. UNKNOWN WATERPILL [Concomitant]
     Indication: DRUG USE FOR UNKNOWN INDICATION
  3. JANUMET [Concomitant]

REACTIONS (3)
  - HYPERSENSITIVITY [None]
  - LIP SWELLING [None]
  - RETINAL DEGENERATION [None]
